FAERS Safety Report 11245773 (Version 1)
Quarter: 2015Q3

REPORT INFORMATION
  Report Type: Spontaneous
  Country: US (occurrence: US)
  Receive Date: 20150707
  Receipt Date: 20150707
  Transmission Date: 20151125
  Serious: Yes (Other)
  Sender: FDA-Public Use
  Company Number: US-AMEDRA PHARMACEUTICALS LLC-2015AMD00128

PATIENT
  Age: 17 Year
  Sex: Female

DRUGS (14)
  1. CISATRACURIUM. [Concomitant]
     Active Substance: CISATRACURIUM
  2. HYDROMORPHONE [Concomitant]
     Active Substance: HYDROMORPHONE
     Dosage: 1 MG, UNK
  3. LIDOCAINE. [Suspect]
     Active Substance: LIDOCAINE
     Dosage: 2 %, BY INFILTRATION
  4. FENTANYL. [Concomitant]
     Active Substance: FENTANYL
     Dosage: 350 ?G, UNK
  5. MIDAZOLAM [Concomitant]
     Active Substance: MIDAZOLAM\MIDAZOLAM HYDROCHLORIDE
     Dosage: 2 MG, UNK
  6. METHYLPREDNISOLONE. [Concomitant]
     Active Substance: METHYLPREDNISOLONE
     Dosage: 125 MG, EVERY 4 HOURS
  7. EPINEPHRINE. [Suspect]
     Active Substance: EPINEPHRINE
     Indication: OSTEOTOMY
     Dosage: 1:100,000, BY INFILTRATION
  8. SEVOFLURANE. [Concomitant]
     Active Substance: SEVOFLURANE
  9. KETOROLAC [Concomitant]
     Active Substance: KETOROLAC\KETOROLAC TROMETHAMINE
     Dosage: 30 MG, UNK
  10. ALBUTEROL. [Concomitant]
     Active Substance: ALBUTEROL
  11. OXYMETAZOLINE [Concomitant]
     Active Substance: OXYMETAZOLINE
  12. PROPOFOL. [Concomitant]
     Active Substance: PROPOFOL
  13. ACETAMINOPHEN. [Concomitant]
     Active Substance: ACETAMINOPHEN
     Dosage: 1 G, UNK
  14. PHENYLEPHRINE [Concomitant]
     Active Substance: PHENYLEPHRINE\PHENYLEPHRINE HYDROCHLORIDE
     Dosage: 400 ?G, UNK

REACTIONS (1)
  - Pupils unequal [Recovered/Resolved]
